FAERS Safety Report 18666001 (Version 1)
Quarter: 2020Q4

REPORT INFORMATION
  Report Type: Spontaneous
  Country: US (occurrence: US)
  Receive Date: 20201226
  Receipt Date: 20201226
  Transmission Date: 20210114
  Serious: No
  Sender: FDA-Public Use
  Company Number: NVSC2020US334623

PATIENT
  Sex: Female

DRUGS (1)
  1. LATANOPROST. [Suspect]
     Active Substance: LATANOPROST
     Indication: PRODUCT USED FOR UNKNOWN INDICATION
     Dosage: UNK UNK, QD, (1 DAILY 2 EYES)
     Route: 065

REACTIONS (4)
  - Visual impairment [Unknown]
  - Contusion [Unknown]
  - Limb injury [Unknown]
  - Product packaging difficult to open [Unknown]
